FAERS Safety Report 9239303 (Version 3)
Quarter: 2013Q3

REPORT INFORMATION
  Report Type: Spontaneous
  Country: AU (occurrence: AU)
  Receive Date: 20130418
  Receipt Date: 20130715
  Transmission Date: 20140515
  Serious: Yes (Death, Life-Threatening, Hospitalization)
  Sender: FDA-Public Use
  Company Number: AU-ROCHE-1214894

PATIENT
  Age: 60 Year
  Sex: Male

DRUGS (3)
  1. PEGASYS [Suspect]
     Indication: PRODUCT USED FOR UNKNOWN INDICATION
     Route: 058
     Dates: start: 20121010
  2. RIBAVIRIN [Suspect]
     Indication: PRODUCT USED FOR UNKNOWN INDICATION
     Route: 048
     Dates: start: 20121010
  3. INCIVO [Suspect]
     Indication: PRODUCT USED FOR UNKNOWN INDICATION
     Route: 048
     Dates: start: 20121010, end: 20130102

REACTIONS (9)
  - Temporal arteritis [Fatal]
  - Neuropathy peripheral [Fatal]
  - Hemiparesis [Fatal]
  - Zygomycosis [Unknown]
  - Headache [Unknown]
  - Pneumococcal bacteraemia [Recovering/Resolving]
  - Circulatory collapse [Recovering/Resolving]
  - Renal failure acute [Recovering/Resolving]
  - Anaemia [Recovered/Resolved with Sequelae]
